FAERS Safety Report 15401073 (Version 1)
Quarter: 2018Q3

REPORT INFORMATION
  Report Type: Spontaneous
  Country: US (occurrence: US)
  Receive Date: 20180914
  Receipt Date: 20180914
  Transmission Date: 20181010
  Serious: No
  Sender: FDA-Public Use
  Company Number: None

PATIENT
  Age: 10 Year
  Sex: Male
  Weight: 45 kg

DRUGS (1)
  1. SINGULAIR [Suspect]
     Active Substance: MONTELUKAST SODIUM

REACTIONS (11)
  - Depression [None]
  - Anger [None]
  - Weight increased [None]
  - Mood swings [None]
  - Sleep disorder [None]
  - Somnambulism [None]
  - Insomnia [None]
  - Apathy [None]
  - Depressed mood [None]
  - Sleep terror [None]
  - Hallucinations, mixed [None]

NARRATIVE: CASE EVENT DATE: 20180701
